FAERS Safety Report 8810407 (Version 4)
Quarter: 2017Q1

REPORT INFORMATION
  Report Type: Report from Study
  Country: JP (occurrence: JP)
  Receive Date: 20120926
  Receipt Date: 20170215
  Transmission Date: 20170429
  Serious: Yes (Death, Life-Threatening, Other)
  Sender: FDA-Public Use
  Company Number: JP-BRISTOL-MYERS SQUIBB COMPANY-16979346

PATIENT
  Age: 69 Year
  Sex: Male
  Weight: 60 kg

DRUGS (3)
  1. PREDNISOLONE. [Concomitant]
     Active Substance: PREDNISOLONE
     Indication: PRODUCT USED FOR UNKNOWN INDICATION
     Dosage: UNK
     Route: 065
     Dates: start: 20120110
  2. ABATACEPT [Suspect]
     Active Substance: ABATACEPT
     Indication: RHEUMATOID ARTHRITIS
     Dosage: LAST DOSE ON 06JUL2012
     Route: 041
     Dates: start: 20120706
  3. ENBREL [Suspect]
     Active Substance: ETANERCEPT
     Indication: PRODUCT USED FOR UNKNOWN INDICATION
     Dosage: UNK
     Route: 065
     Dates: start: 20120420, end: 20120706

REACTIONS (2)
  - Pneumonia aspiration [Fatal]
  - Acute disseminated encephalomyelitis [Fatal]

NARRATIVE: CASE EVENT DATE: 20120713
